FAERS Safety Report 24274478 (Version 2)
Quarter: 2024Q3

REPORT INFORMATION
  Report Type: Spontaneous
  Country: DE (occurrence: DE)
  Receive Date: 20240902
  Receipt Date: 20240911
  Transmission Date: 20241016
  Serious: Yes (Life-Threatening, Other)
  Sender: TORRENT
  Company Number: None

PATIENT
  Age: 35 Year
  Sex: Male
  Weight: 66 kg

DRUGS (1)
  1. SERTRALINE [Suspect]
     Active Substance: SERTRALINE HYDROCHLORIDE
     Indication: Stress management
     Dosage: 50 MG
     Route: 048
     Dates: start: 20240515, end: 20240531

REACTIONS (19)
  - Penile pain [Not Recovered/Not Resolved]
  - Loss of libido [Not Recovered/Not Resolved]
  - Penile size reduced [Not Recovered/Not Resolved]
  - Penile vascular disorder [Not Recovered/Not Resolved]
  - Hypoaesthesia [Not Recovered/Not Resolved]
  - Genital hypoaesthesia [Not Recovered/Not Resolved]
  - Erectile dysfunction [Recovered/Resolved with Sequelae]
  - Suicidal ideation [Recovered/Resolved with Sequelae]
  - Nausea [Unknown]
  - Sleep disorder [Unknown]
  - Testicular pain [Recovered/Resolved]
  - Impaired quality of life [Unknown]
  - Pelvic pain [Not Recovered/Not Resolved]
  - Sexual dysfunction [Not Recovered/Not Resolved]
  - Depression [Unknown]
  - Fatigue [Unknown]
  - Dyspepsia [Unknown]
  - Dry mouth [Unknown]
  - Euphoric mood [Unknown]

NARRATIVE: CASE EVENT DATE: 20240515
